FAERS Safety Report 11774866 (Version 4)
Quarter: 2015Q4

REPORT INFORMATION
  Report Type: Spontaneous
  Country: IT (occurrence: IT)
  Receive Date: 20151124
  Receipt Date: 20151209
  Transmission Date: 20160304
  Serious: Yes (Other)
  Sender: FDA-Public Use
  Company Number: CHPA2015IT013524

PATIENT
  Age: 50 Year
  Sex: Male

DRUGS (4)
  1. VOLTAREN [Suspect]
     Active Substance: DICLOFENAC SODIUM
     Indication: ARTHRALGIA
     Dosage: 1 POS. UNIT, QD
     Route: 061
     Dates: start: 20151006, end: 20151012
  2. TACHIPIRINA [Suspect]
     Active Substance: ACETAMINOPHEN
     Indication: ARTHRALGIA
     Dosage: 1000 MG, QD
     Route: 048
     Dates: start: 20151006, end: 20151012
  3. FLUIFORT [Concomitant]
     Indication: COUGH
     Dosage: 2.7 G, UNK
     Route: 048
     Dates: start: 20151006, end: 20151012
  4. COPEGUS [Suspect]
     Active Substance: RIBAVIRIN
     Indication: CHRONIC HEPATITIS C
     Dosage: 1000 MG, QD
     Route: 048
     Dates: start: 20150928, end: 20151016

REACTIONS (1)
  - Hypertransaminasaemia [Recovered/Resolved]

NARRATIVE: CASE EVENT DATE: 20151012
